FAERS Safety Report 14138925 (Version 1)
Quarter: 2017Q4

REPORT INFORMATION
  Report Type: Report from Study
  Country: US (occurrence: US)
  Receive Date: 20171027
  Receipt Date: 20171027
  Transmission Date: 20180321
  Serious: Yes (Other)
  Sender: FDA-Public Use
  Company Number: US-GILEAD-2017-0292188

PATIENT
  Age: 37 Year
  Sex: Female

DRUGS (1)
  1. LEDIPASVIR/SOFOSBUVIR [Suspect]
     Active Substance: LEDIPASVIR\SOFOSBUVIR
     Indication: CHRONIC HEPATITIS C
     Dosage: 1 DF, UNK
     Route: 048
     Dates: start: 20170726, end: 20170922

REACTIONS (11)
  - Constipation [Unknown]
  - Maternal exposure during pregnancy [Unknown]
  - Abortion spontaneous [Unknown]
  - Blood pressure increased [Unknown]
  - Musculoskeletal discomfort [Unknown]
  - Vaginal haemorrhage [Unknown]
  - Paranasal sinus discomfort [Not Recovered/Not Resolved]
  - Pollakiuria [Unknown]
  - Headache [Unknown]
  - Inflammation [Unknown]
  - Discomfort [Unknown]

NARRATIVE: CASE EVENT DATE: 2017
